FAERS Safety Report 10033912 (Version 4)
Quarter: 2014Q2

REPORT INFORMATION
  Report Type: Report from Study
  Country: AU (occurrence: AU)
  Receive Date: 20140325
  Receipt Date: 20140520
  Transmission Date: 20141212
  Serious: Yes (Hospitalization)
  Sender: FDA-Public Use
  Company Number: AU-BRISTOL-MYERS SQUIBB COMPANY-19947670

PATIENT
  Age: 55 Year
  Sex: Female

DRUGS (7)
  1. ORENCIA [Suspect]
     Indication: RHEUMATOID ARTHRITIS
     Dosage: ONGOING?500MG IV
     Route: 042
     Dates: start: 20120323
  2. METHOTREXATE [Concomitant]
  3. OXYNORM [Concomitant]
  4. FOLIC ACID [Concomitant]
  5. ASPIRIN [Concomitant]
  6. NEXIUM [Concomitant]
  7. DOTHIEPIN [Concomitant]

REACTIONS (5)
  - Nausea [Unknown]
  - Weight decreased [Unknown]
  - Cholelithiasis [Unknown]
  - Fatigue [Unknown]
  - Decreased appetite [Unknown]
